FAERS Safety Report 4286287-7 (Version None)
Quarter: 2004Q1

REPORT INFORMATION
  Report Type: 
  Country: None (occurrence: None)
  Receive Date: 20040129
  Receipt Date: 20030910
  Transmission Date: 20041129
  Serious: No
  Sender: FDA-Public Use
  Company Number: A001-002-005787

PATIENT
  Age: 74 Year
  Sex: Male
  Weight: 98 kg

DRUGS (6)
  1. ARICEPT [Suspect]
     Indication: DEMENTIA ALZHEIMER'S TYPE
     Dosage: 5 MG, 1 IN 1 D, ORAL
     Route: 048
  2. LIPITOR [Concomitant]
  3. VITAMIN C (ASCORBIC ACID) [Concomitant]
  4. COLACE (DOCUSATE SODIUM) [Concomitant]
  5. LOVENOX [Concomitant]
  6. UNKNOWN ANESTHESIA MEDICATIONS [Concomitant]

REACTIONS (2)
  - CONFUSIONAL STATE [None]
  - CONVULSION [None]
